FAERS Safety Report 10664478 (Version 1)
Quarter: 2014Q4

REPORT INFORMATION
  Report Type: Spontaneous
  Country: US (occurrence: US)
  Receive Date: 20141219
  Receipt Date: 20141219
  Transmission Date: 20150529
  Serious: No
  Sender: FDA-Public Use
  Company Number: US-ELI_LILLY_AND_COMPANY-US201412002395

PATIENT
  Sex: Male

DRUGS (4)
  1. CIALIS [Suspect]
     Active Substance: TADALAFIL
     Indication: DEPRESSION
  2. ZOCOR [Concomitant]
     Active Substance: SIMVASTATIN
  3. CIALIS [Suspect]
     Active Substance: TADALAFIL
     Indication: PAIN
     Dosage: UNK
     Route: 048
     Dates: start: 2012
  4. PLAVIX [Concomitant]
     Active Substance: CLOPIDOGREL BISULFATE

REACTIONS (2)
  - Drug ineffective [Unknown]
  - Off label use [Unknown]
